FAERS Safety Report 4599109-1 (Version None)
Quarter: 2005Q1

REPORT INFORMATION
  Report Type: 
  Country: None (occurrence: None)
  Receive Date: 20050302
  Receipt Date: 20050223
  Transmission Date: 20050727
  Serious: Yes (Other)
  Sender: FDA-Public Use
  Company Number: 2005-02-0120

PATIENT
  Age: 44 Year
  Sex: Female
  Weight: 55 kg

DRUGS (5)
  1. INTRON A [Suspect]
     Indication: MALIGNANT MELANOMA
     Dosage: 31 MIU QD INTRAVENOUS
     Route: 042
     Dates: start: 20041113, end: 20041117
  2. CIPRAMIL [Concomitant]
  3. CEFACLOR [Concomitant]
  4. EMBOLEX [Concomitant]
  5. ZOFRAN [Concomitant]

REACTIONS (4)
  - BASEDOW'S DISEASE [None]
  - DEPRESSION [None]
  - INFLUENZA LIKE ILLNESS [None]
  - THYROID CYST [None]
